FAERS Safety Report 18099158 (Version 1)
Quarter: 2020Q3

REPORT INFORMATION
  Report Type: Spontaneous
  Country: US (occurrence: US)
  Receive Date: 20200731
  Receipt Date: 20200731
  Transmission Date: 20201103
  Serious: No
  Sender: FDA-Public Use
  Company Number: US-PARATEK PHARMACEUTICALS, INC.-2020PTK00067

PATIENT
  Age: 63 Year
  Sex: Female

DRUGS (3)
  1. THREE UNSPECIFIED ANTIBIOTICS [Suspect]
     Active Substance: UNSPECIFIED INGREDIENT
     Dosage: UNK
  2. NUZYRA [Suspect]
     Active Substance: OMADACYCLINE
     Indication: BRONCHIECTASIS
  3. NUZYRA [Suspect]
     Active Substance: OMADACYCLINE
     Indication: MYCOBACTERIAL INFECTION
     Dosage: 300 MG, 1X/DAY
     Route: 048
     Dates: start: 20200210, end: 20200517

REACTIONS (4)
  - Weight decreased [Unknown]
  - Off label use [Recovered/Resolved]
  - Decreased appetite [Unknown]
  - Hepatic enzyme increased [Unknown]

NARRATIVE: CASE EVENT DATE: 2020
